FAERS Safety Report 17788050 (Version 1)
Quarter: 2020Q2

REPORT INFORMATION
  Report Type: Report from Study
  Country: None (occurrence: US)
  Receive Date: 20200515
  Receipt Date: 20200515
  Transmission Date: 20200714
  Serious: Yes (Hospitalization)
  Sender: FDA-Public Use
  Company Number: US-ABBVIE-20K-163-3381339-00

PATIENT
  Sex: Male

DRUGS (2)
  1. VENCLEXTA [Suspect]
     Active Substance: VENETOCLAX
     Indication: ACUTE MYELOID LEUKAEMIA
     Route: 048
     Dates: start: 20191213
  2. VENCLEXTA [Suspect]
     Active Substance: VENETOCLAX
     Route: 048

REACTIONS (8)
  - Contusion [Unknown]
  - Gait disturbance [Unknown]
  - Peripheral vascular disorder [Unknown]
  - Muscular weakness [Unknown]
  - Soft tissue haemorrhage [Unknown]
  - Bone marrow transplant [Unknown]
  - Pain in extremity [Unknown]
  - Product use issue [Unknown]
